FAERS Safety Report 7500926-6 (Version None)
Quarter: 2011Q2

REPORT INFORMATION
  Report Type: 
  Country: None (occurrence: None)
  Receive Date: 20110524
  Receipt Date: 20110519
  Transmission Date: 20111010
  Serious: Yes (Death, Hospitalization)
  Sender: FDA-Public Use
  Company Number: US-EISAI INC-E7389-01070-CLI-US

PATIENT
  Sex: Male
  Weight: 100 kg

DRUGS (21)
  1. COMPAZINE [Concomitant]
     Indication: NAUSEA
     Route: 048
     Dates: start: 20091222
  2. DOXYCYCLINE [Concomitant]
     Indication: VOMITING
  3. LEVAQUIN [Concomitant]
     Indication: PROPHYLAXIS
     Route: 048
     Dates: start: 20101111
  4. TAMSULOSIN HCL [Concomitant]
     Route: 048
     Dates: start: 20100920
  5. ROBAXIN [Concomitant]
     Route: 048
     Dates: start: 20060601
  6. ELAVIL [Concomitant]
     Indication: DEPRESSION
     Route: 048
     Dates: start: 20070601
  7. CLINDAMYCIN [Concomitant]
     Indication: RASH
     Route: 061
     Dates: start: 20101117
  8. LOTRISONE [Concomitant]
     Indication: RASH
     Route: 061
     Dates: start: 20101117
  9. EPIRUBICIN HYDROCHLORIDE [Suspect]
     Indication: NON-SMALL CELL LUNG CANCER
     Route: 041
     Dates: start: 20101013, end: 20101103
  10. FUROSEMIDE [Concomitant]
     Route: 048
     Dates: start: 20091001
  11. POTASSIUM CHLORIDE [Concomitant]
     Route: 048
     Dates: start: 20100923
  12. SERTRALINE HYDROCHLORIDE [Concomitant]
     Indication: DEPRESSION
     Route: 048
     Dates: start: 20090601
  13. ERLOTINIB HYDROCHLORIDE [Suspect]
     Indication: NON-SMALL CELL LUNG CANCER
     Route: 048
     Dates: start: 20101014, end: 20101117
  14. MS CONTIN [Concomitant]
     Indication: CHEST PAIN
     Route: 048
     Dates: start: 20101005
  15. COMPAZINE [Concomitant]
     Indication: VOMITING
  16. MILK OF MAGNESIA TAB [Concomitant]
     Indication: VOMITING
  17. MEDROL [Concomitant]
     Indication: RASH
     Route: 048
     Dates: start: 20101117
  18. SPIRIVA [Concomitant]
     Route: 048
     Dates: start: 20090109
  19. PROAIR HFA [Concomitant]
     Route: 048
     Dates: start: 20091109
  20. DOXYCYCLINE [Concomitant]
     Indication: RASH
     Route: 048
     Dates: start: 20101020
  21. MILK OF MAGNESIA TAB [Concomitant]
     Indication: CONSTIPATION
     Route: 048
     Dates: start: 20091109

REACTIONS (2)
  - ACUTE RESPIRATORY FAILURE [None]
  - PNEUMONIA [None]
